FAERS Safety Report 11780296 (Version 1)
Quarter: 2015Q4

REPORT INFORMATION
  Report Type: Spontaneous
  Country: US (occurrence: US)
  Receive Date: 20151126
  Receipt Date: 20151126
  Transmission Date: 20160305
  Serious: No
  Sender: FDA-Public Use
  Company Number: US-JNJFOC-20151008079

PATIENT
  Age: 11 Month
  Sex: Male
  Weight: 9.07 kg

DRUGS (1)
  1. INFANTS TYLENOL [Suspect]
     Active Substance: ACETAMINOPHEN
     Indication: TEETHING
     Dosage: EVERY 8 HOURS
     Route: 048
     Dates: end: 20151009

REACTIONS (2)
  - Psychomotor hyperactivity [Recovered/Resolved]
  - Product quality issue [Unknown]
